FAERS Safety Report 7854158-2 (Version None)
Quarter: 2011Q4

REPORT INFORMATION
  Report Type: 
  Country: None (occurrence: None)
  Receive Date: 20111026
  Receipt Date: 20100913
  Transmission Date: 20120403
  Serious: No
  Sender: FDA-Public Use
  Company Number: US-BRISTOL-MYERS SQUIBB COMPANY-15282205

PATIENT
  Sex: Female

DRUGS (3)
  1. SOY MILK [Concomitant]
  2. MULTI-VITAMIN [Concomitant]
  3. BUSPAR [Suspect]
     Indication: ANXIETY
     Dosage: PRESCRIBED IN THE LAST YEAR, 5MG TAKEN FEW DAYS AGO AND TAKEN AGAIN ON 13SEP10

REACTIONS (2)
  - BURNING SENSATION [None]
  - DYSPEPSIA [None]
